FAERS Safety Report 24368840 (Version 1)
Quarter: 2024Q3

REPORT INFORMATION
  Report Type: Report from Study
  Country: US (occurrence: US)
  Receive Date: 20240927
  Receipt Date: 20240927
  Transmission Date: 20241017
  Serious: Yes (Hospitalization)
  Sender: ABBVIE
  Company Number: US-ABBVIE-5936881

PATIENT
  Age: 68 Year
  Sex: Female

DRUGS (1)
  1. VENCLEXTA [Suspect]
     Active Substance: VENETOCLAX
     Indication: Myelodysplastic syndrome
     Route: 048
     Dates: start: 202409

REACTIONS (4)
  - Malaise [Unknown]
  - Off label use [Unknown]
  - Constipation [Unknown]
  - Malnutrition [Unknown]

NARRATIVE: CASE EVENT DATE: 20240901
